FAERS Safety Report 12629118 (Version 1)
Quarter: 2016Q3

REPORT INFORMATION
  Report Type: Spontaneous
  Country: DE (occurrence: DE)
  Receive Date: 20160808
  Receipt Date: 20160808
  Transmission Date: 20161109
  Serious: Yes (Hospitalization, Other)
  Sender: FDA-Public Use
  Company Number: DE-AMGEN-DEUSP2016101182

PATIENT
  Sex: Male

DRUGS (32)
  1. RITUXIMAB [Suspect]
     Active Substance: RITUXIMAB
     Indication: B-CELL LYMPHOMA
     Dosage: 750 MG, UNK (EVERY 1 ,1 DAY FOR 1 DAY, LAST DOSE PRIOR TO SYNCOPE- 15/DEC/2015)
     Route: 042
     Dates: start: 20151215
  2. BISOPROLOL [Concomitant]
     Active Substance: BISOPROLOL
     Indication: HYPERTONIA
     Dosage: 2.5 MG, BID (2 IN 1 D)
     Route: 048
  3. PEGFILGRASTIM [Suspect]
     Active Substance: PEGFILGRASTIM
     Dosage: UNK (MOST RECENT DOSE PRIOR TO DYSPNEA (D4 OF EVERY 14 DAYS)
     Route: 058
     Dates: start: 20151204, end: 20151204
  4. RITUXIMAB [Suspect]
     Active Substance: RITUXIMAB
     Dosage: 375 MG/M2, Q2WK (1 IN 14 D)
     Route: 042
     Dates: start: 20160210, end: 20160210
  5. VINCRISTINE [Suspect]
     Active Substance: VINCRISTINE
     Dosage: UNK, Q2WK (MOST RECENT DOSE PRIOR TO DYSPNEA (1 IN 14 D))
     Route: 042
     Dates: start: 20151202, end: 20151202
  6. BISOPROLOL [Concomitant]
     Active Substance: BISOPROLOL
     Indication: HYPERTENSION
  7. COTRIM FORTE [Concomitant]
     Active Substance: SULFAMETHOXAZOLE\TRIMETHOPRIM
     Indication: INFECTION PROPHYLAXIS
     Dosage: 960 MG, Q2WK (2/WEEKLY)
     Route: 048
     Dates: start: 20151205
  8. PREDNISOLONE. [Suspect]
     Active Substance: PREDNISOLONE
     Dosage: UNK (ON DAY 2 AND 6 FOR 5 DAYS) DATE OF MOST RECENT DOSES PRIOR TO ATRIAL FIBRILLATION: 14/FEB/2016
     Route: 048
     Dates: start: 20160210, end: 20160214
  9. LEVODOPA [Concomitant]
     Active Substance: LEVODOPA
     Indication: RESTLESS LEGS SYNDROME
     Dosage: 100/25 MG (1/2 EVERY 2 BDAY)
     Route: 048
  10. PEGFILGRASTIM [Suspect]
     Active Substance: PEGFILGRASTIM
     Indication: B-CELL LYMPHOMA
     Dosage: UNK (DAY 4 FOR 1 DAY, LAST DOSE PRIOR TO SYNCOPE- 19/DEC/2015)
     Route: 058
     Dates: start: 20151219, end: 20151219
  11. PEGFILGRASTIM [Suspect]
     Active Substance: PEGFILGRASTIM
     Dosage: UNK, QD (DATE OF MOST RECENT DOSES PRIOR TO ATRIAL FIBRILLATION: 15/FEB/2016) (1 IN 1 D)
     Route: 058
     Dates: start: 20160215, end: 20160215
  12. DOXORUBICINE [Suspect]
     Active Substance: DOXORUBICIN
     Dosage: UNK UNK, Q2WK (DATE OF MOST RECENT DOSES PRIOR TO ATRIAL FIBRILLATION: 10/FEB/2016 (1 IN 14 D))
     Route: 042
     Dates: start: 20160210, end: 20160210
  13. ACICLOVIR [Concomitant]
     Active Substance: ACYCLOVIR
     Indication: INFECTION PROPHYLAXIS
     Dosage: 400 MG, TID (3 IN 1 D)
     Route: 048
     Dates: start: 20151204
  14. COLECALCIFEROL [Concomitant]
     Active Substance: CHOLECALCIFEROL
     Indication: VITAMIN SUPPLEMENTATION
     Dosage: 20000 IU, QWK (1 IN 1 WK)
     Route: 048
     Dates: start: 20151202
  15. CYCLOPHOSPHAMIDE. [Suspect]
     Active Substance: CYCLOPHOSPHAMIDE
     Dosage: UNK, Q2WK (DATE OF MOST RECENT DOSES PRIOR TO ATRIAL FIBRILLATION: 10/FEB/2016) (1 IN 14 D)
     Route: 042
     Dates: start: 20160210, end: 20160210
  16. CIPROFLOXACIN. [Concomitant]
     Active Substance: CIPROFLOXACIN
     Indication: INFECTION PROPHYLAXIS
     Dosage: UNK UNK, BID (D6-12 POST CHEMO (2 IN 1 D))
     Route: 048
     Dates: start: 20151208
  17. ENALAPRIL MALEATE. [Concomitant]
     Active Substance: ENALAPRIL MALEATE
     Indication: HYPERTONIA
     Dosage: 2.5 MG, BID (2 IN 1 D)
     Route: 048
  18. CARBIDOPA W/LEVODOPA [Concomitant]
     Active Substance: CARBIDOPA\LEVODOPA
     Indication: RESTLESS LEGS SYNDROME
     Dosage: UNK (100/125, 1/2 TAB EVERY SECOND DAY)
     Route: 048
  19. CYCLOPHOSPHAMIDE. [Suspect]
     Active Substance: CYCLOPHOSPHAMIDE
     Indication: B-CELL LYMPHOMA
     Dosage: UNK (EVERY 1 ,1 DAY FOR 1 DAY, LAST DOSE PRICR TO SYNCOPE- 16/DEC/2015)
     Route: 042
     Dates: start: 20151216
  20. VINCRISTINE [Suspect]
     Active Substance: VINCRISTINE
     Indication: B-CELL LYMPHOMA
     Dosage: UNK (EVERY 14 DAY FOR 1 DAY, LAST DOSE PRIOR TO SYNCOPE- 16/DEC/2015)
     Route: 042
     Dates: start: 20151216
  21. ENOXAPARIN SODIUM. [Concomitant]
     Active Substance: ENOXAPARIN SODIUM
     Dosage: 8 ML, BID (2 IN 1 D)
     Route: 058
     Dates: start: 20151023, end: 20160318
  22. CLEXANE [Concomitant]
     Active Substance: ENOXAPARIN SODIUM
     Dosage: 0.8 ML, UNK
     Dates: start: 20151023
  23. PANTOPRAZOL [Concomitant]
     Active Substance: PANTOPRAZOLE SODIUM
     Dosage: 40 MG, QD (1 IN 1 D)
     Route: 048
  24. RITUXIMAB [Suspect]
     Active Substance: RITUXIMAB
     Dosage: 375 MG/M2, Q2WK (1 IN 14 D)
     Route: 042
     Dates: start: 20151201
  25. DOXORUBICINE [Suspect]
     Active Substance: DOXORUBICIN
     Dosage: 50 MG/M2, Q2WK (1 IN 14 D)
     Route: 042
     Dates: start: 20151202, end: 20151202
  26. VINCRISTINE [Suspect]
     Active Substance: VINCRISTINE
     Dosage: UNK, Q2WK (DATE OF MOST RECENT DOSES PRIOR TO ATRIAL FIBRILLATION: 10/FEB/2016 (1 IN 14 D))
     Route: 042
     Dates: start: 20160210, end: 20160210
  27. OXYCODON HCL AL [Concomitant]
     Indication: PAIN
     Dosage: 5 MG, BID (2 IN 1 D)
     Route: 048
  28. CYCLOPHOSPHAMIDE. [Suspect]
     Active Substance: CYCLOPHOSPHAMIDE
     Dosage: UNK, Q2WK (EVERY 1 ,1 DAY FOR 1 DAY, LAST DOSE PRICR TO SYNCOPE- 16/DEC/2015)
     Route: 042
     Dates: start: 20151202, end: 20151202
  29. DOXORUBICINE [Suspect]
     Active Substance: DOXORUBICIN
     Indication: B-CELL LYMPHOMA
     Dosage: UNK (EVERY 14 DAY FOR 1 DAY, LAST DOSE PRIOR TO SYNCOPE- 16/DEC/2015)
     Route: 042
     Dates: start: 20151216
  30. PREDNISOLONE. [Suspect]
     Active Substance: PREDNISOLONE
     Indication: B-CELL LYMPHOMA
     Dosage: (DAY 2-6 FOR 5 DAYS, LAST DOSE PRIOR TO SYNCOPE- 19/DEC/2015)UNK
     Route: 048
     Dates: start: 20151215, end: 20151219
  31. PREDNISOLONE. [Suspect]
     Active Substance: PREDNISOLONE
     Dosage: 100 MG, UNK (D 2-6 FOR 5 DAYS)
     Route: 048
     Dates: start: 20151202, end: 20151206
  32. SULFAMETHOXAZOLE-TRIMETHOPRIM (SMZ) [Concomitant]
     Active Substance: SULFAMETHOXAZOLE\TRIMETHOPRIM
     Indication: INFECTION PROPHYLAXIS
     Dosage: 960 MG, TID (1-0-1, 2/WEEK)
     Route: 048
     Dates: start: 20151212

REACTIONS (5)
  - Dyspnoea [Recovered/Resolved]
  - Erysipelas [Recovered/Resolved]
  - Atrial fibrillation [Recovered/Resolved]
  - White blood cell count decreased [Recovered/Resolved]
  - Syncope [Recovered/Resolved]

NARRATIVE: CASE EVENT DATE: 20151208
